FAERS Safety Report 5003535-6 (Version None)
Quarter: 2006Q2

REPORT INFORMATION
  Report Type: 
  Country: None (occurrence: None)
  Receive Date: 20060511
  Receipt Date: 20060425
  Transmission Date: 20061013
  Serious: Yes (Death)
  Sender: FDA-Public Use
  Company Number: GBR-2006-0002197

PATIENT
  Age: 84 Year
  Sex: Male

DRUGS (12)
  1. OXYNORM [Suspect]
     Indication: ARTHRALGIA
     Dosage: SEE IMAGE,SUBCUTANEOUS
     Route: 058
     Dates: start: 20051228
  2. OXYNORM [Suspect]
     Indication: ARTHRALGIA
     Dosage: SEE IMAGE,SUBCUTANEOUS
     Route: 058
     Dates: start: 20060109
  3. OXYNORM [Suspect]
     Indication: ARTHRALGIA
     Dosage: SEE IMAGE,SUBCUTANEOUS
     Route: 058
     Dates: start: 20060115
  4. PRIMPERAN TAB [Suspect]
     Indication: ARTHRALGIA
     Dosage: 4 ML, DAILY, SUBCUTANEOUS
     Route: 058
  5. MIRTAZAPINE [Concomitant]
  6. MOVICOL [Concomitant]
  7. FRAGMIN [Concomitant]
  8. SODIUM PICOSULFATE (SODIUM PICOSULFATE) [Concomitant]
  9. BETAPRED [Concomitant]
  10. ZOPICLONE (ZOPICLONE) [Concomitant]
  11. DIGOXIN [Concomitant]
  12. OMEPRAZOLE [Concomitant]

REACTIONS (5)
  - INFUSION RELATED REACTION [None]
  - INJECTION SITE ERYTHEMA [None]
  - INJECTION SITE REACTION [None]
  - INJECTION SITE SWELLING [None]
  - NEOPLASM MALIGNANT [None]
